FAERS Safety Report 8988930 (Version 1)
Quarter: 2012Q4

REPORT INFORMATION
  Report Type: 
  Country: DZ (occurrence: DZ)
  Receive Date: 20121227
  Receipt Date: 20121227
  Transmission Date: 20130627
  Serious: Yes (Other)
  Sender: FDA-Public Use
  Company Number: DZ-PFIZER INC-2012306101

PATIENT
  Age: 22 Year
  Sex: Female

DRUGS (1)
  1. LYRICA [Suspect]
     Dosage: 50 UNK, UNK
     Dates: start: 20121204, end: 20121204

REACTIONS (4)
  - Intentional overdose [Not Recovered/Not Resolved]
  - Suicide attempt [Unknown]
  - Hallucination [Not Recovered/Not Resolved]
  - Confusional state [Not Recovered/Not Resolved]
